FAERS Safety Report 7578039-7 (Version None)
Quarter: 2011Q2

REPORT INFORMATION
  Report Type: 
  Country: None (occurrence: None)
  Receive Date: 20110628
  Receipt Date: 20110621
  Transmission Date: 20111010
  Serious: Yes (Hospitalization)
  Sender: FDA-Public Use
  Company Number: US-PFIZER INC-2011106271

PATIENT
  Sex: Female
  Weight: 56.689 kg

DRUGS (4)
  1. WARFARIN [Concomitant]
     Indication: AORTIC VALVE REPLACEMENT
     Dosage: UNK
     Dates: start: 20110415
  2. DENOSUMAB [Concomitant]
     Indication: METASTASES TO BONE
     Dosage: AS REPORTED, Q 28 DAYS, X UNKNOWN CYCLES
     Dates: start: 20110418
  3. SYNTHROID [Concomitant]
     Indication: THYROID THERAPY
     Dosage: UNK
  4. SUTENT [Suspect]
     Indication: THYROID CANCER
     Dosage: 50 MG, DAILY
     Route: 048
     Dates: start: 20110418, end: 20110428

REACTIONS (4)
  - DEHYDRATION [None]
  - VOMITING [None]
  - DIARRHOEA [None]
  - NAUSEA [None]
